FAERS Safety Report 8478812-7 (Version None)
Quarter: 2012Q2

REPORT INFORMATION
  Report Type: 
  Country: None (occurrence: None)
  Receive Date: 20120629
  Receipt Date: 20120618
  Transmission Date: 20120825
  Serious: Yes (Death, Hospitalization, Other)
  Sender: FDA-Public Use
  Company Number: DE-ROCHE-732262

PATIENT
  Sex: Female
  Weight: 64 kg

DRUGS (3)
  1. PARATHYROID HORMONE [Concomitant]
     Indication: OSTEOPOROSIS
  2. ACTEMRA [Suspect]
     Indication: RHEUMATOID ARTHRITIS
     Dosage: LAST DOSE PRIOR TO SAE: 16/AUG/2011
     Route: 042
     Dates: start: 20100713, end: 20100810
  3. ACTEMRA [Suspect]
     Route: 042

REACTIONS (3)
  - PHARYNGEAL ABSCESS [None]
  - CYSTITIS [None]
  - OVARIAN CANCER [None]
